FAERS Safety Report 7282844-4 (Version None)
Quarter: 2011Q1

REPORT INFORMATION
  Report Type: 
  Country: None (occurrence: None)
  Receive Date: 20110209
  Receipt Date: 20110204
  Transmission Date: 20110831
  Serious: Yes (Death, Other)
  Sender: FDA-Public Use
  Company Number: PHHY2010US74228

PATIENT
  Sex: Male

DRUGS (11)
  1. RAPAMUNE [Suspect]
     Dosage: 1 MG 2X1DAY
     Dates: start: 20080101
  2. VALCYTE [Concomitant]
  3. NIFEDIPINE [Concomitant]
  4. NEORAL [Suspect]
     Indication: RENAL TRANSPLANT
     Dosage: UNK
     Dates: start: 19890101, end: 20080101
  5. TEGRETOL [Concomitant]
  6. GABAPENTIN [Concomitant]
  7. RISPERIDONE [Concomitant]
  8. RAPAMUNE [Suspect]
     Dosage: 1 MG 4X1DAY
     Dates: start: 20080101
  9. PREDNISONE [Concomitant]
  10. SANDIMMUNE [Suspect]
     Indication: RENAL TRANSPLANT
     Dosage: UNK
     Dates: start: 19860101, end: 19890101
  11. LABETALOL [Concomitant]

REACTIONS (5)
  - LYMPHADENOPATHY [None]
  - HYPERTENSION [None]
  - LYMPHOMA [None]
  - CONVULSION [None]
  - DEATH [None]
